FAERS Safety Report 17220425 (Version 1)
Quarter: 2019Q4

REPORT INFORMATION
  Report Type: Spontaneous
  Country: NL (occurrence: NL)
  Receive Date: 20191231
  Receipt Date: 20191231
  Transmission Date: 20200122
  Serious: Yes (Other)
  Sender: FDA-Public Use
  Company Number: NL-BAUSCH-BL-2019-066269

PATIENT
  Sex: Male
  Weight: 74 kg

DRUGS (4)
  1. METFORMINE [Suspect]
     Active Substance: METFORMIN HYDROCHLORIDE
     Indication: DIABETES MELLITUS
     Dosage: 1XPD 500
     Route: 065
     Dates: start: 201801, end: 201906
  2. LEVOTHYROXINE NATRIUM [Concomitant]
     Indication: PRODUCT USED FOR UNKNOWN INDICATION
     Dosage: 1X PD 50 MICRGR
     Dates: start: 201609
  3. ANDROGEL [Concomitant]
     Active Substance: TESTOSTERONE
     Indication: PRODUCT USED FOR UNKNOWN INDICATION
     Dosage: 1X P 2DGN 25 MGR
     Dates: start: 201609
  4. ROSUVASTATINE [Concomitant]
     Active Substance: ROSUVASTATIN
     Indication: PRODUCT USED FOR UNKNOWN INDICATION
     Dosage: 1XPD 10 MGR
     Dates: end: 201906

REACTIONS (5)
  - Pyrexia [Recovered/Resolved]
  - Haematoma [Recovered/Resolved]
  - Emotional poverty [Recovered/Resolved]
  - Depressed level of consciousness [Recovered/Resolved]
  - Oedema peripheral [Recovered/Resolved]
